FAERS Safety Report 6769973-6 (Version None)
Quarter: 2010Q2

REPORT INFORMATION
  Report Type: 
  Country: None (occurrence: None)
  Receive Date: 20100615
  Receipt Date: 20100608
  Transmission Date: 20101027
  Serious: Yes (Other)
  Sender: FDA-Public Use
  Company Number: US-AMGEN-QUU409192

PATIENT
  Sex: Female
  Weight: 80.4 kg

DRUGS (4)
  1. NPLATE [Suspect]
     Indication: IDIOPATHIC THROMBOCYTOPENIC PURPURA
     Route: 058
     Dates: start: 20090515
  2. CORTICOSTEROIDS [Concomitant]
     Dates: start: 20090430
  3. IMMU-G [Concomitant]
     Dates: start: 20090430
  4. RITUXIMAB [Concomitant]
     Dates: start: 20090501

REACTIONS (1)
  - BONE MARROW RETICULIN FIBROSIS [None]
